FAERS Safety Report 11655550 (Version 3)
Quarter: 2016Q1

REPORT INFORMATION
  Report Type: Spontaneous
  Country: US (occurrence: US)
  Receive Date: 20151023
  Receipt Date: 20160127
  Transmission Date: 20160525
  Serious: No
  Sender: FDA-Public Use
  Company Number: US-PFIZER INC-2015354738

PATIENT
  Age: 65 Year
  Sex: Female
  Weight: 68.27 kg

DRUGS (4)
  1. NEURONTIN [Suspect]
     Active Substance: GABAPENTIN
     Indication: FIBROMYALGIA
     Dosage: 600 MG, 3X/DAY
     Dates: start: 201506
  2. NEURONTIN [Suspect]
     Active Substance: GABAPENTIN
     Indication: NEUROPATHY PERIPHERAL
  3. NEURONTIN [Suspect]
     Active Substance: GABAPENTIN
     Indication: PAIN
  4. NEURONTIN [Suspect]
     Active Substance: GABAPENTIN
     Indication: DISCOMFORT

REACTIONS (1)
  - Drug ineffective [Unknown]
